FAERS Safety Report 5492151-8 (Version None)
Quarter: 2007Q4

REPORT INFORMATION
  Report Type: 
  Country: None (occurrence: None)
  Receive Date: 20071015
  Receipt Date: 20070628
  Transmission Date: 20080405
  Serious: No
  Sender: FDA-Public Use
  Company Number: 2007SP002402

PATIENT
  Age: 30 Year
  Sex: Female
  Weight: 90.7194 kg

DRUGS (4)
  1. LUNESTA [Suspect]
     Indication: INSOMNIA
     Dosage: 3 MG; HS; ORAL
     Route: 048
     Dates: start: 20070627
  2. LITHIUM CARBONATE [Concomitant]
  3. CELEXA [Concomitant]
  4. CLONAZEEAM [Concomitant]

REACTIONS (2)
  - DYSGEUSIA [None]
  - VOMITING [None]
